FAERS Safety Report 8886809 (Version 1)
Quarter: 2012Q4

REPORT INFORMATION
  Report Type: 
  Country: GB (occurrence: GB)
  Receive Date: 20121105
  Receipt Date: 20121105
  Transmission Date: 20130627
  Serious: Yes (Hospitalization, Other)
  Sender: FDA-Public Use
  Company Number: GB-B.I. PHARMACEUTICALS,INC./RIDGEFIELD-2012-UK-01670UK

PATIENT
  Age: 72 Year
  Sex: Female

DRUGS (5)
  1. DABIGATRAN [Suspect]
     Indication: ATRIAL FIBRILLATION
     Dosage: 300 mg
     Route: 048
     Dates: start: 20120725, end: 20121004
  2. ASPIRIN [Concomitant]
     Dosage: 75 mg
     Route: 048
  3. BISOPROLOL [Concomitant]
     Dosage: 2.5 mg
     Route: 048
  4. LEVOTHYROXINE [Concomitant]
     Dosage: 75 mg
     Route: 048
  5. OMEPRAZOLE [Concomitant]
     Dosage: 20 mg
     Route: 048

REACTIONS (9)
  - Pleural effusion [Not Recovered/Not Resolved]
  - Left ventricular dysfunction [Not Recovered/Not Resolved]
  - Atrial fibrillation [Not Recovered/Not Resolved]
  - Abdominal pain [Not Recovered/Not Resolved]
  - Dyspepsia [Not Recovered/Not Resolved]
  - Nausea [Not Recovered/Not Resolved]
  - Pallor [Not Recovered/Not Resolved]
  - Dyspnoea [Not Recovered/Not Resolved]
  - Asthenia [Not Recovered/Not Resolved]
